FAERS Safety Report 20080772 (Version 1)
Quarter: 2021Q4

REPORT INFORMATION
  Report Type: Spontaneous
  Country: US (occurrence: None)
  Receive Date: 20211116
  Receipt Date: 20211116
  Transmission Date: 20220303
  Serious: Yes (Death)
  Sender: FDA-Public Use
  Company Number: None

PATIENT
  Age: 69 Year
  Sex: Female

DRUGS (16)
  1. NORDITROPIN [Suspect]
     Active Substance: SOMATROPIN
     Indication: Hypopituitarism
     Dosage: FREQUENCY : DAILY;?
     Route: 058
     Dates: start: 20210319, end: 20211114
  2. AZITHROMYCIN [Concomitant]
  3. BETAMETH DIP CRE [Concomitant]
  4. CALCIUM/D [Concomitant]
  5. DESMOPRESSIN [Concomitant]
  6. ESTRADIOL CRE [Concomitant]
  7. HYDROCORT [Concomitant]
  8. KETOCONAZOLE CRE [Concomitant]
  9. LEVOTHYROXIN [Concomitant]
  10. LIOTHYRONINE [Concomitant]
  11. MAGNESIUM [Concomitant]
  12. NYSTATIN CRE [Concomitant]
  13. PREDNISONE [Concomitant]
  14. SOLU-CORTEF [Concomitant]
  15. TAMSULOSIN [Concomitant]
  16. ZINC [Concomitant]

REACTIONS (1)
  - Death [None]

NARRATIVE: CASE EVENT DATE: 20211114
